FAERS Safety Report 10803829 (Version 4)
Quarter: 2015Q4

REPORT INFORMATION
  Report Type: Report from Study
  Country: NL (occurrence: NL)
  Receive Date: 20150217
  Receipt Date: 20151218
  Transmission Date: 20160304
  Serious: Yes (Hospitalization)
  Sender: FDA-Public Use
  Company Number: NL-SA-2015SA004137

PATIENT
  Sex: Male

DRUGS (12)
  1. LEMTRADA [Suspect]
     Active Substance: ALEMTUZUMAB
     Route: 042
     Dates: start: 20141120, end: 20141121
  2. METHYLPREDNISOLONE. [Concomitant]
     Active Substance: METHYLPREDNISOLONE
     Indication: PROPHYLAXIS
     Route: 042
     Dates: start: 20141121, end: 20141121
  3. PARACETAMOL [Concomitant]
     Active Substance: ACETAMINOPHEN
     Indication: PROPHYLAXIS
     Route: 048
     Dates: start: 20141117, end: 20141125
  4. VALACICLOVIR [Concomitant]
     Active Substance: VALACYCLOVIR HYDROCHLORIDE
     Indication: PROPHYLAXIS
     Route: 048
     Dates: start: 20141117, end: 20141222
  5. METHYLPREDNISOLONE. [Concomitant]
     Active Substance: METHYLPREDNISOLONE
     Indication: PROPHYLAXIS
     Route: 042
     Dates: start: 20141117, end: 20141117
  6. LEMTRADA [Suspect]
     Active Substance: ALEMTUZUMAB
     Route: 042
     Dates: start: 20141117, end: 20141117
  7. METHYLPREDNISOLONE. [Concomitant]
     Active Substance: METHYLPREDNISOLONE
     Indication: PROPHYLAXIS
     Route: 042
     Dates: start: 20141120, end: 20141120
  8. METHYLPREDNISOLONE. [Concomitant]
     Active Substance: METHYLPREDNISOLONE
     Indication: PROPHYLAXIS
     Route: 042
     Dates: start: 20141124, end: 20141125
  9. LEMTRADA [Suspect]
     Active Substance: ALEMTUZUMAB
     Route: 042
     Dates: start: 20141123, end: 20141125
  10. METHYLPREDNISOLONE. [Concomitant]
     Active Substance: METHYLPREDNISOLONE
     Indication: PROPHYLAXIS
     Route: 042
     Dates: start: 20151123
  11. CLEMASTINE [Concomitant]
     Active Substance: CLEMASTINE
     Indication: PROPHYLAXIS
     Route: 048
     Dates: start: 20141117, end: 20141125
  12. PANTOPRAZOLE [Concomitant]
     Active Substance: PANTOPRAZOLE SODIUM
     Indication: PROPHYLAXIS
     Route: 048
     Dates: start: 20141117, end: 20141125

REACTIONS (12)
  - Blood lactate dehydrogenase increased [Recovered/Resolved]
  - Thrombocytopenia [Recovered/Resolved]
  - Lymphopenia [Recovered/Resolved]
  - Hepatic enzyme increased [Recovered/Resolved]
  - Leukopenia [Recovered/Resolved]
  - Leukocytosis [Recovered/Resolved]
  - Leukocytosis [Recovered/Resolved]
  - C-reactive protein increased [Recovered/Resolved]
  - Alanine aminotransferase increased [Recovered/Resolved]
  - Polycythaemia [Not Recovered/Not Resolved]
  - Leukocyturia [Recovered/Resolved]
  - Bacteriuria [Unknown]

NARRATIVE: CASE EVENT DATE: 20141118
